FAERS Safety Report 4617450-0 (Version None)
Quarter: 2005Q1

REPORT INFORMATION
  Report Type: 
  Country: None (occurrence: None)
  Receive Date: 20050318
  Receipt Date: 20050302
  Transmission Date: 20050727
  Serious: Yes (Disabling)
  Sender: FDA-Public Use
  Company Number: WAES 0503USA00870

PATIENT
  Age: 57 Year
  Sex: Male

DRUGS (6)
  1. CRIXIVAN [Suspect]
     Indication: HIV INFECTION
     Dosage: 800 + 2400 MG/TID PO
     Route: 048
     Dates: start: 19970304, end: 20010616
  2. CRIXIVAN [Suspect]
     Indication: HIV INFECTION
     Dosage: 800 + 2400 MG/TID PO
     Route: 048
     Dates: start: 20010621
  3. RETROVIR [Suspect]
     Indication: HIV INFECTION
     Dosage: 100 MG/TID PO
     Route: 048
     Dates: start: 19960801, end: 19971225
  4. RETROVIR [Suspect]
     Indication: HIV INFECTION
     Dosage: 200 MG/BID PO
     Route: 048
     Dates: start: 19971226, end: 20010616
  5. RETROVIR [Suspect]
     Indication: HIV INFECTION
     Dosage: 400 MG/DAILY PO
     Route: 048
     Dates: start: 20010621, end: 20040206
  6. EPIVIR [Concomitant]

REACTIONS (3)
  - BLOOD TRIGLYCERIDES INCREASED [None]
  - MOBILITY DECREASED [None]
  - MUSCLE ATROPHY [None]
